FAERS Safety Report 8413713-1 (Version None)
Quarter: 2012Q2

REPORT INFORMATION
  Report Type: 
  Country: None (occurrence: None)
  Receive Date: 20120605
  Receipt Date: 20120525
  Transmission Date: 20120825
  Serious: Yes (Hospitalization)
  Sender: FDA-Public Use
  Company Number: US-JHP PHARMACEUTICALS, LLC-JHP201200281

PATIENT
  Age: 68 Year
  Sex: Male

DRUGS (11)
  1. GLIPIZIDE [Concomitant]
  2. CELECOXIB [Concomitant]
  3. DIPHENHYDRAMINE HCL [Concomitant]
     Indication: ANAPHYLACTIC REACTION
     Dosage: 50 MG, UNK
     Route: 042
  4. RAMIPRIL [Concomitant]
  5. ASPIRIN [Concomitant]
  6. COLCHICINE [Concomitant]
  7. METFORMIN HCL [Concomitant]
  8. EPINEPHRINE [Suspect]
     Indication: ANAPHYLACTIC REACTION
     Dosage: 0.3 MG (1:1000), SINGLE
     Route: 030
  9. ATORVASTATIN CALCIUM [Concomitant]
  10. METOPROLOL TARTRATE [Concomitant]
  11. SITAGLIPTIN [Concomitant]

REACTIONS (3)
  - MYOCARDIAL ISCHAEMIA [None]
  - HYPERSENSITIVITY [None]
  - CORONARY ARTERY THROMBOSIS [None]
